FAERS Safety Report 10837795 (Version 1)
Quarter: 2015Q1

REPORT INFORMATION
  Report Type: Spontaneous
  Country: US (occurrence: US)
  Receive Date: 20150219
  Receipt Date: 20150219
  Transmission Date: 20150721
  Serious: No
  Sender: FDA-Public Use
  Company Number: US-GLAXOSMITHKLINE-US2015GSK014471

PATIENT
  Age: 56 Year
  Sex: Female

DRUGS (1)
  1. VOTRIENT [Suspect]
     Active Substance: PAZOPANIB HYDROCHLORIDE
     Indication: OVARIAN CANCER
     Dosage: 800 MG, QD
     Dates: start: 20150109

REACTIONS (10)
  - Nausea [Unknown]
  - Alopecia [Unknown]
  - Diarrhoea [Unknown]
  - Dizziness [Unknown]
  - Vitreous floaters [Unknown]
  - Fatigue [Unknown]
  - Myalgia [Unknown]
  - Arthralgia [Unknown]
  - Halo vision [Unknown]
  - Eye colour change [Unknown]

NARRATIVE: CASE EVENT DATE: 20150128
